FAERS Safety Report 7733672-4 (Version None)
Quarter: 2011Q3

REPORT INFORMATION
  Report Type: 
  Country: None (occurrence: None)
  Receive Date: 20110907
  Receipt Date: 20110823
  Transmission Date: 20111222
  Serious: Yes (Other)
  Sender: FDA-Public Use
  Company Number: US-JNJFOC-2004078610

PATIENT
  Sex: Female
  Weight: 77.11 kg

DRUGS (9)
  1. VERAPAMIL HCL [Concomitant]
     Indication: HYPERTENSION
     Dosage: DAILY DOSE TEXT: 120 MG QD
  2. VICODIN [Concomitant]
     Indication: PAIN
     Dosage: DAILY DOSE TEXT: 5 MG 2-3 QD
  3. BECLOMETHASONE DIPROPIONATE [Concomitant]
     Indication: ASTHMA
     Dosage: DAILY DOSE TEXT: PRN
  4. ALBUTEROL [Concomitant]
     Indication: ASTHMA
     Dosage: DAILY DOSE TEXT: PRN
  5. BEN-GAY ULTRA [Suspect]
     Indication: BACK PAIN
     Dosage: DAILY DOSE TEXT: ENOUGH TO COVER THE LOWER BACK ONCE
     Route: 061
     Dates: start: 20041009, end: 20041009
  6. DICYCLOVERINE HYDROCHLORIDE [Concomitant]
     Indication: PAIN
     Dosage: DAILY DOSE TEXT: 1-2 TABLETS QD
     Route: 048
  7. PANTOPRAZOLE [Concomitant]
     Indication: GASTROOESOPHAGEAL REFLUX DISEASE
     Dosage: DAILY DOSE TEXT: 40 MG QD
  8. MAXIDEX [Concomitant]
     Indication: HYPERTENSION
     Dosage: DAILY DOSE TEXT: 50 MG QD
  9. DIAZEPAM [Concomitant]
     Indication: MUSCLE SPASMS
     Dosage: DAILY DOSE TEXT: 10 MG BID-TID

REACTIONS (5)
  - BURNS SECOND DEGREE [None]
  - BURNS THIRD DEGREE [None]
  - EMOTIONAL DISTRESS [None]
  - APPLICATION SITE PAIN [None]
  - SCAR [None]
